FAERS Safety Report 21409247 (Version 1)
Quarter: 2022Q4

REPORT INFORMATION
  Report Type: Report from Study
  Country: IT (occurrence: IT)
  Receive Date: 20221004
  Receipt Date: 20221004
  Transmission Date: 20230113
  Serious: Yes (Disabling, Other)
  Sender: FDA-Public Use
  Company Number: None

PATIENT
  Age: 22 Year
  Sex: Female
  Weight: 79 kg

DRUGS (5)
  1. BRENTUXIMAB VEDOTIN [Suspect]
     Active Substance: BRENTUXIMAB VEDOTIN
     Indication: Hodgkin^s disease
     Dosage: 89.92 MILLIGRAM
     Route: 042
     Dates: start: 20220610, end: 20220805
  2. DOXORUBICINA AUROBINDO [Concomitant]
     Indication: Hodgkin^s disease
     Dosage: 46 MILLIGRAM
     Route: 040
     Dates: start: 20220610, end: 20220916
  3. VINBLASTINE SULFATE [Concomitant]
     Active Substance: VINBLASTINE SULFATE
     Indication: Hodgkin^s disease
     Dosage: 11.4 MILLIGRAM
     Route: 042
     Dates: start: 20220610, end: 20220916
  4. LYRICA [Concomitant]
     Active Substance: PREGABALIN
     Indication: Neuralgia
     Dosage: 50 MILLIGRAM
     Route: 048
  5. DACARBAZINE [Concomitant]
     Active Substance: DACARBAZINE
     Indication: Hodgkin^s disease
     Dosage: 690 MILLIGRAM
     Route: 042
     Dates: start: 20220610, end: 20220916

REACTIONS (2)
  - Neuropathy peripheral [Not Recovered/Not Resolved]
  - Paraesthesia [Not Recovered/Not Resolved]

NARRATIVE: CASE EVENT DATE: 20220723
